FAERS Safety Report 17865983 (Version 1)
Quarter: 2020Q2

REPORT INFORMATION
  Report Type: Spontaneous
  Country: DK (occurrence: DK)
  Receive Date: 20200605
  Receipt Date: 20200605
  Transmission Date: 20200714
  Serious: Yes (Other)
  Sender: FDA-Public Use
  Company Number: DK-AMGEN-DNKSP2020089472

PATIENT
  Age: 48 Year
  Sex: Female

DRUGS (15)
  1. SKINOREN [Concomitant]
     Active Substance: AZELAIC ACID
     Indication: ROSACEA
     Dosage: 2 DF, QD
     Dates: start: 20190718
  2. AIMOVIG [Suspect]
     Active Substance: ERENUMAB-AOOE
     Indication: MIGRAINE
     Dosage: 140 MG, 28D
     Route: 058
     Dates: start: 20190725
  3. PHENERGAN [Concomitant]
     Active Substance: PROMETHAZINE HYDROCHLORIDE
     Indication: MIGRAINE
     Dosage: 25 MG
     Route: 048
     Dates: start: 20161206
  4. NIZORAL [Concomitant]
     Active Substance: KETOCONAZOLE
     Indication: DANDRUFF
     Dosage: 1 DF, QD
     Dates: start: 20190718
  5. BONYL [Concomitant]
     Active Substance: NAPROXEN
     Indication: PAIN
     Dosage: 500 MG
     Route: 048
     Dates: start: 20171212
  6. FINACEA [Concomitant]
     Active Substance: AZELAIC ACID
     Indication: ROSACEA
     Dosage: 2 DF, QD
     Dates: start: 20190718
  7. ISOTRETINOIN ORION [Concomitant]
     Active Substance: ISOTRETINOIN
     Indication: ACNE
     Dosage: 20 MG
     Route: 048
     Dates: start: 20190718
  8. MIRENA [Concomitant]
     Active Substance: LEVONORGESTREL
     Indication: CONTRACEPTION
     Dosage: 20 UG
     Route: 015
     Dates: start: 20161004
  9. DICLOFENAC [Concomitant]
     Active Substance: DICLOFENAC
     Indication: PAIN
     Dosage: 50 MG
     Route: 048
     Dates: start: 20160823
  10. METOCLOPRAMIDE ACCORD [Concomitant]
     Active Substance: METOCLOPRAMIDE
     Indication: NAUSEA
     Dosage: 10 MG
     Route: 048
     Dates: start: 20190305
  11. NOZINAN [Concomitant]
     Active Substance: LEVOMEPROMAZINE
     Indication: MIGRAINE
     Dosage: 5 MG
     Route: 048
     Dates: start: 20160823
  12. LANSOPRAZOL ACTAVIS [Concomitant]
     Indication: GASTRIC PH DECREASED
     Dosage: 30 MG, QD
     Route: 048
     Dates: start: 20161206
  13. SUMATRIPTAN ACCORD [Concomitant]
     Indication: MIGRAINE
     Dosage: 100 MG
     Route: 048
     Dates: start: 20140317
  14. PECTYL BRYSTDRAABER [Concomitant]
     Indication: COUGH
     Dosage: 15 ML, QD (1,7 + 51,5 + 1,2 MG/ML)
     Route: 048
     Dates: start: 20151201
  15. CIRCADIN [Concomitant]
     Active Substance: MELATONIN
     Indication: INSOMNIA
     Dosage: 2 MG, QD
     Route: 048
     Dates: start: 20190509

REACTIONS (1)
  - Infection susceptibility increased [Not Recovered/Not Resolved]

NARRATIVE: CASE EVENT DATE: 20200107
